FAERS Safety Report 23927745 (Version 2)
Quarter: 2024Q2

REPORT INFORMATION
  Report Type: Report from Study
  Country: US (occurrence: US)
  Receive Date: 20240531
  Receipt Date: 20240605
  Transmission Date: 20240716
  Serious: Yes (Hospitalization)
  Sender: FDA-Public Use
  Company Number: US-APELLIS-2024-APL-0000104

PATIENT

DRUGS (1)
  1. PEGCETACOPLAN [Suspect]
     Active Substance: PEGCETACOPLAN
     Indication: Paroxysmal nocturnal haemoglobinuria
     Dosage: 1080 MG, SUBCUTANEOUS, EVERY 3 DAYS
     Route: 058
     Dates: start: 20220414

REACTIONS (4)
  - Chest pain [Recovering/Resolving]
  - Hypertension [Recovering/Resolving]
  - White blood cell count decreased [Recovering/Resolving]
  - Contusion [Unknown]

NARRATIVE: CASE EVENT DATE: 20240506
